FAERS Safety Report 9981295 (Version 1)
Quarter: 2014Q1

REPORT INFORMATION
  Report Type: Spontaneous
  Country: US (occurrence: None)
  Receive Date: 20140306
  Receipt Date: 20140306
  Transmission Date: 20141002
  Serious: Yes (Disabling, Other)
  Sender: FDA-Public Use
  Company Number: None

PATIENT
  Age: 45 Year
  Sex: Male
  Weight: 77.11 kg

DRUGS (1)
  1. HYDROCODONE APAP [Suspect]
     Indication: POSTOPERATIVE CARE
     Dosage: 2 PILLS THREE TIMES DAILY TAKEN BY MOUTH
     Route: 048
     Dates: start: 20140304, end: 20140304

REACTIONS (4)
  - Pruritus [None]
  - Urticaria [None]
  - Product quality issue [None]
  - Drug ineffective [None]
